FAERS Safety Report 7110755-3 (Version None)
Quarter: 2010Q4

REPORT INFORMATION
  Report Type: 
  Country: None (occurrence: None)
  Receive Date: 20101118
  Receipt Date: 20101109
  Transmission Date: 20110411
  Serious: Yes (Hospitalization)
  Sender: FDA-Public Use
  Company Number: B0683415A

PATIENT
  Age: 50 Year
  Sex: Male

DRUGS (3)
  1. SULTANOL [Suspect]
     Indication: PRODUCT USED FOR UNKNOWN INDICATION
     Route: 055
  2. SERETIDE [Concomitant]
     Indication: ASTHMA
     Dosage: 500MCG PER DAY
     Route: 055
  3. MEPTIN [Concomitant]
     Indication: ASTHMA

REACTIONS (2)
  - CHEST DISCOMFORT [None]
  - DYSPNOEA [None]
